FAERS Safety Report 8883411 (Version 1)
Quarter: 2012Q4

REPORT INFORMATION
  Report Type: 
  Country: GB (occurrence: GB)
  Receive Date: 20121102
  Receipt Date: 20121102
  Transmission Date: 20130627
  Serious: Yes (Life-Threatening, Hospitalization, Disabling, Other)
  Sender: FDA-Public Use
  Company Number: GB-B.I. PHARMACEUTICALS,INC./RIDGEFIELD-2012-UK-01675UK

PATIENT
  Age: 74 Year
  Sex: Male

DRUGS (3)
  1. DABIGATRAN [Suspect]
     Dosage: 110 mg
     Route: 048
     Dates: start: 20111107, end: 201203
  2. DIGOXIN [Concomitant]
     Dosage: 250 mcg
     Route: 048
     Dates: start: 20110707
  3. RAMIPRIL [Concomitant]
     Dosage: 2.5 mg
     Route: 048
     Dates: start: 20100629

REACTIONS (1)
  - Acute leukaemia [Not Recovered/Not Resolved]
